FAERS Safety Report 12844279 (Version 1)
Quarter: 2016Q4

REPORT INFORMATION
  Report Type: Spontaneous
  Country: US (occurrence: US)
  Receive Date: 20161012
  Receipt Date: 20161012
  Transmission Date: 20170207
  Serious: Yes (Hospitalization)
  Sender: FDA-Public Use
  Company Number: None

PATIENT
  Age: 61 Year
  Sex: Female
  Weight: 53.9 kg

DRUGS (1)
  1. APIXABAN [Suspect]
     Active Substance: APIXABAN
     Indication: PULMONARY EMBOLISM
     Route: 048
     Dates: start: 20160714, end: 20160802

REACTIONS (4)
  - Haematochezia [None]
  - Back pain [None]
  - Staphylococcal infection [None]
  - Rectal haemorrhage [None]

NARRATIVE: CASE EVENT DATE: 20160803
